FAERS Safety Report 9056805 (Version 2)
Quarter: 2013Q2

REPORT INFORMATION
  Report Type: Spontaneous
  Country: BR (occurrence: BR)
  Receive Date: 20130201
  Receipt Date: 20130524
  Transmission Date: 20140414
  Serious: Yes (Hospitalization, Other)
  Sender: FDA-Public Use
  Company Number: BR-PFIZER INC-2013038501

PATIENT
  Age: 49 Year
  Sex: Female
  Weight: 78 kg

DRUGS (11)
  1. LYRICA [Suspect]
     Indication: PAIN
     Dosage: 75 MG, UNK
     Route: 048
     Dates: start: 2010
  2. LYRICA [Suspect]
     Indication: FALL
     Dosage: 75 MG, 2X/DAY
     Route: 048
     Dates: start: 20120129
  3. LYRICA [Suspect]
     Indication: NEURALGIA
     Dosage: UNK
     Route: 048
     Dates: start: 20130128
  4. LYRICA [Suspect]
     Indication: MUSCULAR DYSTROPHY
  5. MAREVAN [Suspect]
     Dosage: UNK
  6. ITRASPOR [Concomitant]
     Indication: FUNGAL INFECTION
     Dosage: 1 TABLET (100 MG), 2X/DAY
     Route: 048
  7. MODURETIC [Concomitant]
     Indication: DIURETIC THERAPY
     Dosage: 1 TABLET (25MG/2.5MG) A DAY
     Route: 048
  8. NEXIUM [Concomitant]
     Indication: GASTROOESOPHAGEAL REFLUX DISEASE
     Dosage: 1 TABLET (40 MG), 2X/DAY
     Route: 048
  9. NOVALGIN [Concomitant]
     Indication: PAIN
     Dosage: 1 TABLET (1 G), 4X/DAY
     Route: 048
  10. CYMBALTA [Concomitant]
  11. AMITRIPTYLINE [Concomitant]

REACTIONS (15)
  - Thrombosis [Unknown]
  - Varicose vein [Unknown]
  - Endometriosis [Unknown]
  - Abdominal adhesions [Unknown]
  - Catheter placement [Unknown]
  - Spinal disorder [Unknown]
  - Irritable bowel syndrome [Not Recovered/Not Resolved]
  - Depression [Not Recovered/Not Resolved]
  - Hypertension [Not Recovered/Not Resolved]
  - Premature menopause [Not Recovered/Not Resolved]
  - Anxiety [Not Recovered/Not Resolved]
  - Panic reaction [Not Recovered/Not Resolved]
  - Feeling abnormal [Unknown]
  - Somnolence [Not Recovered/Not Resolved]
  - Dizziness [Not Recovered/Not Resolved]
